FAERS Safety Report 13440307 (Version 2)
Quarter: 2017Q2

REPORT INFORMATION
  Report Type: Report from Study
  Country: None (occurrence: US)
  Receive Date: 20170413
  Receipt Date: 20170615
  Transmission Date: 20170830
  Serious: Yes (Other)
  Sender: FDA-Public Use
  Company Number: US-ABBVIE-17K-163-1938932-00

PATIENT
  Age: 48 Year
  Sex: Male

DRUGS (14)
  1. HUMIRA [Suspect]
     Active Substance: ADALIMUMAB
     Indication: RHEUMATOID ARTHRITIS
     Route: 058
     Dates: start: 201610, end: 201705
  2. VITAMIN D [Concomitant]
     Active Substance: CHOLECALCIFEROL
     Indication: VITAMIN SUPPLEMENTATION
  3. NEPHRO-VITE [Concomitant]
     Indication: NEPHROPATHY
  4. VELTASSA [Concomitant]
     Active Substance: PATIROMER
     Indication: NEPHROPATHY
  5. CYCLOBENZAPRINE. [Concomitant]
     Active Substance: CYCLOBENZAPRINE
     Indication: PAIN
  6. VALACYCLOVIR [Concomitant]
     Active Substance: VALACYCLOVIR HYDROCHLORIDE
     Indication: PRODUCT USED FOR UNKNOWN INDICATION
  7. METRONIDAZOLE. [Concomitant]
     Active Substance: METRONIDAZOLE
     Indication: PRODUCT USED FOR UNKNOWN INDICATION
  8. MENATRO [Concomitant]
     Indication: PRODUCT USED FOR UNKNOWN INDICATION
  9. PROLIA [Concomitant]
     Active Substance: DENOSUMAB
     Indication: ARTHRITIS
  10. HYDROXYCHLOROQUINE [Concomitant]
     Active Substance: HYDROXYCHLOROQUINE
     Indication: ARTHRITIS
  11. ALLOPURINOL. [Concomitant]
     Active Substance: ALLOPURINOL
     Indication: GOUT
  12. CARBIDOL [Concomitant]
     Indication: HYPERTENSION
  13. PREDNISONE. [Concomitant]
     Active Substance: PREDNISONE
     Indication: ARTHRITIS
  14. PARICALCITOL. [Concomitant]
     Active Substance: PARICALCITOL
     Indication: NEPHROPATHY

REACTIONS (7)
  - Renal disorder [Unknown]
  - Helicobacter gastritis [Recovered/Resolved]
  - Rash pruritic [Unknown]
  - Rash erythematous [Unknown]
  - Renal failure [Unknown]
  - Dyspepsia [Unknown]
  - Gastrooesophageal reflux disease [Recovered/Resolved]

NARRATIVE: CASE EVENT DATE: 20170201
